FAERS Safety Report 6611431-3 (Version None)
Quarter: 2010Q1

REPORT INFORMATION
  Report Type: 
  Country: None (occurrence: None)
  Receive Date: 20100222
  Receipt Date: 20100212
  Transmission Date: 20100710
  Serious: Yes (Hospitalization)
  Sender: FDA-Public Use
  Company Number: A-CH2010-33974

PATIENT
  Age: 43 Year
  Sex: Female

DRUGS (5)
  1. TRACLEER [Suspect]
     Indication: PULMONARY ARTERIAL HYPERTENSION
     Dosage: 62.5 MG,BID,ORAL
     Route: 048
     Dates: start: 20091211, end: 20091218
  2. FOLAN (EPOPROSTENOL) [Concomitant]
  3. COUMADIN [Concomitant]
  4. LASIX [Concomitant]
  5. CONTRAMAL (TRAMADOL HYPDROCHLORIDE) [Concomitant]

REACTIONS (3)
  - CONDITION AGGRAVATED [None]
  - CYTOLYTIC HEPATITIS [None]
  - PERICARDIAL EFFUSION [None]
